APPROVED DRUG PRODUCT: HEPARIN SODIUM
Active Ingredient: HEPARIN SODIUM
Strength: 1,000 UNITS/ML
Dosage Form/Route: INJECTABLE;INJECTION
Application: A040007 | Product #001
Applicant: DR REDDYS LABORATORIES LTD
Approved: Jun 7, 1996 | RLD: No | RS: No | Type: DISCN